FAERS Safety Report 8407501-X (Version None)
Quarter: 2012Q2

REPORT INFORMATION
  Report Type: 
  Country: None (occurrence: None)
  Receive Date: 20120604
  Receipt Date: 20120522
  Transmission Date: 20120825
  Serious: Yes (Hospitalization)
  Sender: FDA-Public Use
  Company Number: JP-PFIZER INC-2011134680

PATIENT
  Age: 64 Year
  Sex: Male

DRUGS (23)
  1. LANSOPRAZOLE [Concomitant]
     Dosage: 30 MG, 1X/DAY
     Route: 048
  2. DORIPENEM MONOHYDRATE [Concomitant]
     Dosage: UNK
     Route: 041
     Dates: start: 20110521, end: 20110523
  3. NEO-MINOPHAGEN C [Concomitant]
     Dosage: 40 ML, UNK
     Dates: start: 20110522
  4. GANCICLOVIR [Concomitant]
     Dosage: 500 MG, UNK
     Route: 041
     Dates: start: 20110523, end: 20110606
  5. LEVOFLOXACIN [Concomitant]
     Dosage: 500 MG, 1X/DAY
     Route: 048
     Dates: start: 20110524, end: 20110528
  6. CYCLOPHOSPHAMIDE [Suspect]
     Indication: ADULT T-CELL LYMPHOMA/LEUKAEMIA
     Dosage: 510 MG, UNK
     Route: 041
     Dates: start: 20110413, end: 20110413
  7. FUNGUARD [Concomitant]
     Dosage: 100 MG, UNK
     Route: 041
     Dates: start: 20110521, end: 20110523
  8. DOXORUBICIN HYDROCHLORIDE [Suspect]
     Dosage: 45 MG, UNK
     Route: 041
     Dates: start: 20110420, end: 20110420
  9. ONCOVIN [Suspect]
     Indication: ADULT T-CELL LYMPHOMA/LEUKAEMIA
     Dosage: 1.5 MG, UNK
     Route: 041
     Dates: start: 20110413, end: 20110413
  10. ETOPOSIDE [Suspect]
     Indication: ADULT T-CELL LYMPHOMA/LEUKAEMIA
     Dosage: 150 MG, UNK
     Route: 041
     Dates: start: 20110511, end: 20110513
  11. CARBOPLATIN [Suspect]
     Indication: ADULT T-CELL LYMPHOMA/LEUKAEMIA
     Dosage: 350 MG, UNK
     Route: 041
     Dates: start: 20110511, end: 20110511
  12. MAXIPIME [Concomitant]
     Dosage: INJ
     Dates: start: 20110519, end: 20110521
  13. DOXORUBICIN HYDROCHLORIDE [Suspect]
     Indication: ADULT T-CELL LYMPHOMA/LEUKAEMIA
     Dosage: 60 MG, UNK
     Route: 041
     Dates: start: 20110413, end: 20110413
  14. LEVEMIR [Concomitant]
     Dosage: UNK
     Route: 058
     Dates: end: 20110522
  15. KW-0761 [Concomitant]
     Dosage: UNK
     Dates: start: 20110414
  16. CYMERIN [Suspect]
     Indication: ADULT T-CELL LYMPHOMA/LEUKAEMIA
     Dosage: 90 MG, UNK
     Route: 041
     Dates: start: 20110420, end: 20110420
  17. DIFLUCAN [Concomitant]
     Dosage: 200 MG, 1X/DAY
     Route: 048
     Dates: end: 20110520
  18. GRAN [Concomitant]
     Dosage: 75 UG, INJ
     Dates: start: 20110520, end: 20110523
  19. FILDESIN [Suspect]
     Indication: ADULT T-CELL LYMPHOMA/LEUKAEMIA
     Dosage: 3.5 MG, UNK
     Route: 041
     Dates: start: 20110511, end: 20110511
  20. NOVORAPID [Concomitant]
     Dosage: UNK
     Route: 058
     Dates: end: 20110616
  21. COTRIM [Concomitant]
     Dosage: 1 DF, 1X/DAY
     Route: 048
  22. LOXONIN [Concomitant]
     Dosage: 60 MG, UNK
     Route: 048
     Dates: start: 20110518, end: 20110606
  23. MAXIPIME [Concomitant]
     Dosage: INJ
     Dates: start: 20110601, end: 20110608

REACTIONS (1)
  - CYTOMEGALOVIRUS INFECTION [None]
